FAERS Safety Report 9677483 (Version 5)
Quarter: 2014Q2

REPORT INFORMATION
  Report Type: Report from Study
  Country: FR (occurrence: FR)
  Receive Date: 20131108
  Receipt Date: 20140616
  Transmission Date: 20141212
  Serious: Yes (Hospitalization, Other)
  Sender: FDA-Public Use
  Company Number: PHHY2013FR122788

PATIENT
  Age: 84 Year
  Sex: Female
  Weight: 65 kg

DRUGS (15)
  1. ACLASTA/ZOLEDRONATE [Suspect]
     Indication: OSTEOPOROSIS
     Route: 042
     Dates: start: 201203
  2. CALCIUM [Concomitant]
  3. APROVEL [Concomitant]
  4. CORTANCYL [Concomitant]
     Dates: end: 2013
  5. BISOPROLOL [Concomitant]
     Dates: end: 2013
  6. DOLENIO//GLUCOSAMINE SULFATE [Concomitant]
     Indication: OSTEOARTHRITIS
     Dosage: 1 DF, UNK
     Dates: start: 20120321
  7. LAMALINE [Concomitant]
     Indication: SPINAL OSTEOARTHRITIS
     Dosage: 2 DF, UNK
     Dates: start: 20121016
  8. IRBESARTAN [Concomitant]
     Dosage: 300 MG, QD, MORNING
     Dates: start: 201310
  9. LERCANIDIPINE [Concomitant]
     Dosage: 20 MG, QD, EVENING
     Dates: start: 201310
  10. FUROSEMIDE [Concomitant]
     Dosage: 40 MG, QD, MORNING
     Dates: start: 201310
  11. ALDACTONE [Concomitant]
     Dosage: 25 MG, QD, MORNING
     Dates: start: 201310
  12. FIXICAL [Concomitant]
  13. VITAMIN D3 [Concomitant]
  14. TARDYFERON [Concomitant]
  15. AUGMENTIN [Concomitant]
     Indication: ERYSIPELAS

REACTIONS (15)
  - Breath sounds abnormal [Unknown]
  - Rales [Unknown]
  - Cardiomegaly [Unknown]
  - Hypocapnia [Unknown]
  - Asthenia [Unknown]
  - Mitral valve disease [Recovering/Resolving]
  - Cardiac failure [Recovered/Resolved]
  - Dyspnoea exertional [Recovering/Resolving]
  - Oedema peripheral [Recovering/Resolving]
  - Heart valve incompetence [Recovering/Resolving]
  - Mitral valve incompetence [Recovering/Resolving]
  - Pleurisy [Unknown]
  - Osteoarthritis [Unknown]
  - Dilatation atrial [Unknown]
  - Erysipelas [Unknown]
